FAERS Safety Report 25867405 (Version 1)
Quarter: 2025Q4

REPORT INFORMATION
  Report Type: Spontaneous
  Country: US (occurrence: US)
  Receive Date: 20251001
  Receipt Date: 20251001
  Transmission Date: 20260118
  Serious: Yes (Other)
  Sender: LUPIN
  Company Number: US-LUPIN PHARMACEUTICALS INC.-2025-08818

PATIENT
  Age: 34 Year
  Sex: Male

DRUGS (3)
  1. PROPRANOLOL HYDROCHLORIDE [Interacting]
     Active Substance: PROPRANOLOL HYDROCHLORIDE
     Indication: Hypertension
     Dosage: UNK
     Route: 065
  2. PROPRANOLOL HYDROCHLORIDE [Interacting]
     Active Substance: PROPRANOLOL HYDROCHLORIDE
     Dosage: UNK
     Route: 065
  3. DOXAZOSIN [Concomitant]
     Active Substance: DOXAZOSIN MESYLATE
     Indication: Phaeochromocytoma
     Dosage: UNK
     Route: 065

REACTIONS (2)
  - Paroxysmal sympathetic hyperactivity [Recovering/Resolving]
  - Drug-disease interaction [Unknown]
